FAERS Safety Report 9355751 (Version 1)
Quarter: 2013Q2

REPORT INFORMATION
  Report Type: Spontaneous
  Country: US (occurrence: US)
  Receive Date: 20130619
  Receipt Date: 20130619
  Transmission Date: 20140414
  Serious: No
  Sender: FDA-Public Use
  Company Number: US-009507513-1305USA017332

PATIENT
  Age: 5 Year
  Sex: Male

DRUGS (4)
  1. CLARITIN CHEWABLE TABLETS [Suspect]
     Indication: SEASONAL ALLERGY
     Dosage: UNK, UNKNOWN
     Route: 048
  2. CLARITIN CHEWABLE TABLETS [Suspect]
     Indication: RHINORRHOEA
  3. CLARITIN CHEWABLE TABLETS [Suspect]
     Indication: OROPHARYNGEAL PAIN
  4. CLARITIN CHEWABLE TABLETS [Suspect]
     Indication: COUGH

REACTIONS (1)
  - Psychomotor hyperactivity [Unknown]
